FAERS Safety Report 9802021 (Version 2)
Quarter: 2014Q1

REPORT INFORMATION
  Report Type: Report from Study
  Country: CL (occurrence: CL)
  Receive Date: 20140107
  Receipt Date: 20140312
  Transmission Date: 20141002
  Serious: Yes (Hospitalization, Disabling, Other)
  Sender: FDA-Public Use
  Company Number: PHHY2014CL001445

PATIENT
  Age: 91 Year
  Sex: Male

DRUGS (4)
  1. TAREG D [Suspect]
     Indication: HYPERTENSION
     Dosage: 320/12.5MG, UNK
     Route: 048
     Dates: start: 2000, end: 20131213
  2. TAREG D [Suspect]
     Dosage: 0.5 DF (320/12.5MG) AND 0.25 DF (320/12.5MG), UKN
     Dates: start: 20131213
  3. TAREG D [Suspect]
     Dosage: 320/12.5 MG, UKN
     Route: 048
     Dates: end: 20140306
  4. TAREG D [Suspect]
     Dosage: 80/12.5 MG, UNK
     Route: 048
     Dates: start: 20140307

REACTIONS (12)
  - Rectal haemorrhage [Recovered/Resolved]
  - Anaemia [Not Recovered/Not Resolved]
  - Clostridium difficile infection [Recovered/Resolved]
  - Diarrhoea [Recovered/Resolved]
  - Pyrexia [Recovered/Resolved]
  - Hypotension [Recovering/Resolving]
  - Gait disturbance [Recovering/Resolving]
  - Feeling abnormal [Unknown]
  - Back pain [Unknown]
  - Pain in extremity [Unknown]
  - Arthralgia [Unknown]
  - Wrong technique in drug usage process [Unknown]
